FAERS Safety Report 7579643-2 (Version None)
Quarter: 2011Q2

REPORT INFORMATION
  Report Type: 
  Country: None (occurrence: None)
  Receive Date: 20110629
  Receipt Date: 20110627
  Transmission Date: 20111010
  Serious: Yes (Hospitalization, Other)
  Sender: FDA-Public Use
  Company Number: CA-AMGEN-CANSP2011028606

PATIENT
  Age: 49 Year
  Sex: Female
  Weight: 75 kg

DRUGS (1)
  1. NPLATE [Suspect]
     Indication: IDIOPATHIC THROMBOCYTOPENIC PURPURA
     Dosage: 720 A?G, QWK
     Route: 058
     Dates: start: 20110313, end: 20110413

REACTIONS (9)
  - GASTROINTESTINAL HAEMORRHAGE [None]
  - DRUG INEFFECTIVE [None]
  - MOUTH HAEMORRHAGE [None]
  - BLISTER [None]
  - HAEMOGLOBIN DECREASED [None]
  - CEREBRAL HAEMORRHAGE [None]
  - PLATELET COUNT DECREASED [None]
  - DYSPNOEA [None]
  - GINGIVAL BLEEDING [None]
